FAERS Safety Report 19614302 (Version 2)
Quarter: 2021Q3

REPORT INFORMATION
  Report Type: Report from Study
  Country: CA (occurrence: CA)
  Receive Date: 20210727
  Receipt Date: 20210830
  Transmission Date: 20211014
  Serious: Yes (Other)
  Sender: FDA-Public Use
  Company Number: CA-TAKEDA-2021TUS046474

PATIENT
  Age: 20 Year
  Sex: Male

DRUGS (1)
  1. VEDOLIZUMAB [Suspect]
     Active Substance: VEDOLIZUMAB
     Indication: COLITIS ULCERATIVE
     Dosage: 300 MILLIGRAM
     Route: 042
     Dates: start: 20210716

REACTIONS (3)
  - Frequent bowel movements [Not Recovered/Not Resolved]
  - Lethargy [Not Recovered/Not Resolved]
  - Haematochezia [Not Recovered/Not Resolved]
